FAERS Safety Report 8433028-5 (Version None)
Quarter: 2012Q2

REPORT INFORMATION
  Report Type: 
  Country: None (occurrence: None)
  Receive Date: 20120323
  Receipt Date: 20110914
  Transmission Date: 20120825
  Serious: Yes (Other)
  Sender: FDA-Public Use
  Company Number: 163-21880-11072124

PATIENT
  Age: 83 Year
  Sex: Male
  Weight: 82.5547 kg

DRUGS (4)
  1. REVLIMID [Suspect]
     Indication: MULTIPLE MYELOMA
     Dosage: 10 MG, 1 IN 1 D, PO, 5 MG, 1 IN 1 D, PO, 10 MG, 1 IN 1 D, PO, 10 MG, QOD, PO
     Route: 048
     Dates: start: 20100901
  2. REVLIMID [Suspect]
     Indication: MULTIPLE MYELOMA
     Dosage: 10 MG, 1 IN 1 D, PO, 5 MG, 1 IN 1 D, PO, 10 MG, 1 IN 1 D, PO, 10 MG, QOD, PO
     Route: 048
     Dates: start: 20110301, end: 20110701
  3. REVLIMID [Suspect]
     Indication: MULTIPLE MYELOMA
     Dosage: 10 MG, 1 IN 1 D, PO, 5 MG, 1 IN 1 D, PO, 10 MG, 1 IN 1 D, PO, 10 MG, QOD, PO
     Route: 048
     Dates: start: 20100413
  4. REVLIMID [Suspect]
     Indication: MULTIPLE MYELOMA
     Dosage: 10 MG, 1 IN 1 D, PO, 5 MG, 1 IN 1 D, PO, 10 MG, 1 IN 1 D, PO, 10 MG, QOD, PO
     Route: 048
     Dates: start: 20110701

REACTIONS (1)
  - PLATELET COUNT DECREASED [None]
